FAERS Safety Report 4596079-7 (Version None)
Quarter: 2005Q1

REPORT INFORMATION
  Report Type: 
  Country: None (occurrence: None)
  Receive Date: 20050225
  Receipt Date: 20050209
  Transmission Date: 20050727
  Serious: Yes (Hospitalization)
  Sender: FDA-Public Use
  Company Number: DSA_25911_2005

PATIENT
  Age: 52 Year
  Sex: Female

DRUGS (3)
  1. TAVOR [Suspect]
     Dosage: DF ONCE PO
     Route: 048
     Dates: start: 20050207, end: 20050207
  2. STANGYL [Suspect]
     Dosage: DF ONCE PO
     Route: 048
     Dates: start: 20050207, end: 20050207
  3. TAGONIS [Suspect]
     Dosage: DF ONCE PO
     Route: 048
     Dates: start: 20050702, end: 20050207

REACTIONS (5)
  - COMA [None]
  - INTENTIONAL MISUSE [None]
  - SOMNOLENCE [None]
  - SUICIDE ATTEMPT [None]
  - TACHYCARDIA [None]
